FAERS Safety Report 15304175 (Version 1)
Quarter: 2018Q3

REPORT INFORMATION
  Report Type: Spontaneous
  Country: US (occurrence: US)
  Receive Date: 20180809
  Receipt Date: 20180809
  Transmission Date: 20181010
  Serious: Yes (Hospitalization)
  Sender: FDA-Public Use
  Company Number: None

PATIENT
  Age: 8 Year
  Sex: Male

DRUGS (10)
  1. FLUNISOLIDE SPR [Concomitant]
  2. PULMOZYME [Concomitant]
     Active Substance: DORNASE ALFA
  3. OMEPRAZOLE 10MG [Suspect]
     Active Substance: OMEPRAZOLE
     Indication: CYSTIC FIBROSIS
     Route: 048
  4. PARI LC PLUS NEBULIZER [Concomitant]
  5. AMOXICILLIN. [Concomitant]
     Active Substance: AMOXICILLIN
  6. AQUADEKS [Concomitant]
     Active Substance: MINERALS\VITAMINS
  7. SODIUM CHLORIDE. [Concomitant]
     Active Substance: SODIUM CHLORIDE
  8. OMEPRAZOLE. [Concomitant]
     Active Substance: OMEPRAZOLE
  9. PREDNISONE SOL [Concomitant]
  10. CYPROHEPTAD SYP [Concomitant]

REACTIONS (1)
  - Hospitalisation [None]

NARRATIVE: CASE EVENT DATE: 20180809
